FAERS Safety Report 22693331 (Version 2)
Quarter: 2024Q3

REPORT INFORMATION
  Report Type: Spontaneous
  Country: US (occurrence: US)
  Receive Date: 20230711
  Receipt Date: 20240722
  Transmission Date: 20241016
  Serious: No
  Sender: ASTELLAS
  Company Number: US-ASTPRD-AER-2023-009755

PATIENT
  Age: 82 Year
  Sex: Female

DRUGS (1)
  1. MYRBETRIQ [Suspect]
     Active Substance: MIRABEGRON
     Indication: Hypertonic bladder
     Route: 065

REACTIONS (5)
  - Scratch [Unknown]
  - Hypertonic bladder [Unknown]
  - Condition aggravated [Unknown]
  - Pollakiuria [Unknown]
  - Pruritus [Unknown]
